FAERS Safety Report 15037080 (Version 4)
Quarter: 2018Q3

REPORT INFORMATION
  Report Type: Spontaneous
  Country: JP (occurrence: JP)
  Receive Date: 20180620
  Receipt Date: 20180917
  Transmission Date: 20181010
  Serious: Yes (Life-Threatening, Other)
  Sender: FDA-Public Use
  Company Number: JP-PFIZER INC-2018246774

PATIENT
  Age: 77 Year
  Sex: Female

DRUGS (2)
  1. GEMCITABINE HYDROCHLORIDE. [Suspect]
     Active Substance: GEMCITABINE HYDROCHLORIDE
     Indication: OVARIAN CANCER STAGE III
     Dosage: UNK, CYCLIC (800?1000 MG/M2 ON DAYS 1 AND 8, 3?WEEK CYCLES)
     Dates: start: 201510, end: 201802
  2. BEVACIZUMAB. [Suspect]
     Active Substance: BEVACIZUMAB
     Indication: OVARIAN CANCER STAGE III
     Dosage: 15 MG/KG, DAILY (3?WEEK CYCLES)
     Dates: start: 201510, end: 201802

REACTIONS (6)
  - Thrombocytopenia [Recovering/Resolving]
  - Neutropenia [Recovering/Resolving]
  - Epistaxis [Recovering/Resolving]
  - Cellulitis [Recovering/Resolving]
  - Leukopenia [Recovering/Resolving]
  - Proteinuria [Recovering/Resolving]
